FAERS Safety Report 13625367 (Version 1)
Quarter: 2017Q2

REPORT INFORMATION
  Report Type: Spontaneous
  Country: CZ (occurrence: CZ)
  Receive Date: 20170607
  Receipt Date: 20170607
  Transmission Date: 20170830
  Serious: Yes (Other)
  Sender: FDA-Public Use
  Company Number: PHHY2017CZ080219

PATIENT
  Age: 56 Year
  Sex: Male

DRUGS (1)
  1. LEUPRORELIN [Suspect]
     Active Substance: LEUPROLIDE ACETATE
     Indication: PRODUCT USED FOR UNKNOWN INDICATION
     Dosage: 22.5 MG, EVERY 3 MONTHS
     Route: 058
     Dates: start: 2009

REACTIONS (4)
  - Weight increased [Unknown]
  - Hot flush [Unknown]
  - Metastatic neoplasm [Unknown]
  - Prostatic specific antigen increased [Unknown]
